FAERS Safety Report 7429932-7 (Version None)
Quarter: 2011Q2

REPORT INFORMATION
  Report Type: 
  Country: None (occurrence: None)
  Receive Date: 20110421
  Receipt Date: 20110330
  Transmission Date: 20111010
  Serious: No
  Sender: FDA-Public Use
  Company Number: US-B.I. PHARMACEUTICALS,INC./RIDGEFIELD-2011-BP-09643BP

PATIENT
  Age: 78 Year
  Sex: Female

DRUGS (5)
  1. SIMVASTATIN [Concomitant]
  2. PRADAXA [Suspect]
     Indication: ATRIAL FIBRILLATION
     Dosage: 300 MG
     Route: 048
     Dates: start: 20101201
  3. PRADAXA [Suspect]
     Indication: CEREBROVASCULAR ACCIDENT PROPHYLAXIS
  4. INDERAL [Concomitant]
  5. LIBRIUM [Concomitant]

REACTIONS (3)
  - ASTHENIA [None]
  - URTICARIA [None]
  - DRY MOUTH [None]
